FAERS Safety Report 4367393-5 (Version None)
Quarter: 2004Q2

REPORT INFORMATION
  Report Type: 
  Country: None (occurrence: None)
  Receive Date: 20040528
  Receipt Date: 20040528
  Transmission Date: 20050107
  Serious: Yes (Death)
  Sender: FDA-Public Use
  Company Number: None

PATIENT
  Sex: Female
  Weight: 63.05 kg

DRUGS (5)
  1. IMURAN [Suspect]
     Indication: RHEUMATOID ARTHRITIS
     Dosage: 100 MG/50 MG QOD ALTERN ORAL
     Route: 048
  2. PLAQUENIL [Concomitant]
  3. ULTRAM [Concomitant]
  4. NORVASC [Concomitant]
  5. CALCIUM [Concomitant]

REACTIONS (1)
  - LYMPHOMA [None]
